FAERS Safety Report 9713833 (Version 1)
Quarter: 2013Q4

REPORT INFORMATION
  Report Type: Spontaneous
  Country: CA (occurrence: CA)
  Receive Date: 20131126
  Receipt Date: 20131126
  Transmission Date: 20140711
  Serious: Yes (Congenital Anomaly, Other)
  Sender: FDA-Public Use
  Company Number: CA-VIIV HEALTHCARE LIMITED-A1050278A

PATIENT
  Sex: Male
  Weight: 3 kg

DRUGS (3)
  1. KIVEXA [Suspect]
     Indication: PRODUCT USED FOR UNKNOWN INDICATION
     Route: 064
  2. NORVIR [Suspect]
     Indication: PRODUCT USED FOR UNKNOWN INDICATION
     Route: 064
  3. REYATAZ [Suspect]
     Indication: PRODUCT USED FOR UNKNOWN INDICATION
     Route: 064

REACTIONS (7)
  - Brachydactyly [Unknown]
  - Chondrodystrophy [Unknown]
  - Feeding disorder neonatal [Unknown]
  - Congenital bowing of long bones [Unknown]
  - Congenital skin dimples [Unknown]
  - Eye discharge [Unknown]
  - Foetal exposure during pregnancy [Unknown]
